FAERS Safety Report 6984371-8 (Version None)
Quarter: 2010Q3

REPORT INFORMATION
  Report Type: 
  Country: None (occurrence: None)
  Receive Date: 20100915
  Receipt Date: 20100906
  Transmission Date: 20110219
  Serious: Yes (Other)
  Sender: FDA-Public Use
  Company Number: CH-BAYER-201037430GPV

PATIENT
  Age: 27 Year
  Sex: Female
  Weight: 57 kg

DRUGS (1)
  1. QLAIRA [Suspect]
     Route: 048
     Dates: start: 20100201, end: 20100710

REACTIONS (2)
  - DIARRHOEA [None]
  - PREGNANCY ON ORAL CONTRACEPTIVE [None]
